FAERS Safety Report 6357091-0 (Version None)
Quarter: 2009Q3

REPORT INFORMATION
  Report Type: 
  Country: None (occurrence: None)
  Receive Date: 20090910
  Receipt Date: 20090904
  Transmission Date: 20100115
  Serious: Yes (Other)
  Sender: FDA-Public Use
  Company Number: 1000008691

PATIENT
  Age: 35 Year
  Sex: Male

DRUGS (3)
  1. LEXAPRO [Suspect]
     Indication: DEPRESSION
     Dosage: 10 MG (10 MG, 1 IN 1 D), ORAL
     Route: 048
     Dates: start: 20090301
  2. ALCOHOL [Suspect]
     Dosage: 2 BEERS (ONCE)
     Dates: start: 20090903, end: 20090903
  3. LORZEPAM [Concomitant]

REACTIONS (2)
  - BLOOD ALCOHOL INCREASED [None]
  - LEGAL PROBLEM [None]
